FAERS Safety Report 19241177 (Version 4)
Quarter: 2021Q3

REPORT INFORMATION
  Report Type: Report from Study
  Country: KR (occurrence: KR)
  Receive Date: 20210510
  Receipt Date: 20210930
  Transmission Date: 20211014
  Serious: Yes (Hospitalization)
  Sender: FDA-Public Use
  Company Number: KR-ROCHE-2822019

PATIENT
  Age: 67 Year
  Sex: Male
  Weight: 58 kg

DRUGS (4)
  1. 5?FLUOROURACIL [Suspect]
     Active Substance: FLUOROURACIL
     Indication: OESOPHAGEAL CARCINOMA
     Dosage: DAYS 1?5 OF EACH 21 DAY CYCLE (AS PER PROTOCOL). ON 19/APR/2021, RECEIVED MOST RECENT DOSE (1630 MG)
     Route: 042
     Dates: start: 20210420
  2. CISPLATIN. [Suspect]
     Active Substance: CISPLATIN
     Indication: OESOPHAGEAL CARCINOMA
     Dosage: (AS PROTOCOL). ON 19/APR/2021, RECEIVED MOST RECENT DOSE (130.4 MG)
     Route: 042
     Dates: start: 20210420
  3. TIRAGOLUMAB. [Suspect]
     Active Substance: TIRAGOLUMAB
     Indication: OESOPHAGEAL CARCINOMA
     Dosage: (AS PER PROTOCOL). ON 19/APR/2021, RECEIVED MOST RECENT DOSE (600 MG)
     Route: 042
     Dates: start: 20210420
  4. ATEZOLIZUMAB. [Suspect]
     Active Substance: ATEZOLIZUMAB
     Indication: OESOPHAGEAL CARCINOMA
     Dosage: ON 1 OF EVERY 21 DAY CYCLE (AS PER PROTOCOL), ON 19/APR/2021, RECEIVED MOST RECENT DOSE (1200 MG)
     Route: 041
     Dates: start: 20210420

REACTIONS (1)
  - Azotaemia [Not Recovered/Not Resolved]

NARRATIVE: CASE EVENT DATE: 20210426
